FAERS Safety Report 17673535 (Version 2)
Quarter: 2020Q3

REPORT INFORMATION
  Report Type: Spontaneous
  Country: GB (occurrence: GB)
  Receive Date: 20200416
  Receipt Date: 20200916
  Transmission Date: 20201102
  Serious: Yes (Disabling, Other)
  Sender: FDA-Public Use
  Company Number: GB-AUROBINDO-AUR-APL-2020-017910

PATIENT
  Age: 74 Year
  Sex: Male
  Weight: 68 kg

DRUGS (11)
  1. CALCIUM CARBONATE. [Concomitant]
     Active Substance: CALCIUM CARBONATE
     Indication: PRODUCT USED FOR UNKNOWN INDICATION
     Dosage: 2 DOSAGE FORM, ONCE A DAY
     Route: 065
     Dates: start: 20170405
  2. ACETYLSALICYLIC ACID [Concomitant]
     Active Substance: ASPIRIN
     Indication: PRODUCT USED FOR UNKNOWN INDICATION
     Dosage: 1 DOSAGE FORM, ONCE A DAY
     Route: 065
     Dates: start: 20120706
  3. GABAPENTIN CAPSULES [Suspect]
     Active Substance: GABAPENTIN
     Indication: PRODUCT USED FOR UNKNOWN INDICATION
     Dosage: 900 MILLIGRAM, ONCE A DAY
     Route: 065
     Dates: start: 20180530
  4. SIMVASTATIN. [Concomitant]
     Active Substance: SIMVASTATIN
     Indication: PRODUCT USED FOR UNKNOWN INDICATION
     Dosage: 1 DOSAGE FORM, ONCE A DAY (AT NIGHT)
     Route: 065
     Dates: start: 20191129
  5. LACTULOSE. [Concomitant]
     Active Substance: LACTULOSE
     Indication: CONSTIPATION
     Dosage: TAKE 10?15ML TWICE A DAY AS REQUIRED FOR CONSTI...
     Route: 065
     Dates: start: 20180911
  6. CANDESARTAN. [Concomitant]
     Active Substance: CANDESARTAN
     Indication: HYPERTENSION
     Dosage: 2 DOSAGE FORM, ONCE A DAY
     Route: 065
     Dates: start: 20170103
  7. LANSOPRAZOLE. [Concomitant]
     Active Substance: LANSOPRAZOLE
     Indication: PRODUCT USED FOR UNKNOWN INDICATION
     Dosage: 2 DOSAGE FORM, ONCE A DAY (IN MORNING BEFORE BREAKFAST, AND AT NIGHT)
     Route: 065
     Dates: start: 20170103
  8. COLECALCIFEROL [Concomitant]
     Active Substance: CHOLECALCIFEROL
     Indication: PRODUCT USED FOR UNKNOWN INDICATION
     Dosage: USE AS DIRECTED
     Route: 065
     Dates: start: 20191231
  9. FELODIPINE. [Concomitant]
     Active Substance: FELODIPINE
     Indication: PRODUCT USED FOR UNKNOWN INDICATION
     Dosage: 1 DOSAGE FORM, ONCE A DAY
     Route: 065
     Dates: start: 20181023
  10. LAXIDO [Concomitant]
     Active Substance: POLYETHYLENE GLYCOL 3350\POTASSIUM CHLORIDE\SODIUM BICARBONATE\SODIUM CHLORIDE
     Indication: PRODUCT USED FOR UNKNOWN INDICATION
     Dosage: 1 DOSAGE FORM, AS NECESSARY, (ONCE OR TWICE A DAY)
     Route: 065
     Dates: start: 20170127
  11. ACIDEX [Concomitant]
     Active Substance: CALCIUM CARBONATE\SODIUM ALGINATE\SODIUM BICARBONATE
     Indication: PRODUCT USED FOR UNKNOWN INDICATION
     Dosage: 15 MILLILITER, ONCE A DAY (SPOONFUL)
     Route: 065
     Dates: start: 20200114

REACTIONS (1)
  - Hallucination [Recovered/Resolved]
